FAERS Safety Report 10277204 (Version 2)
Quarter: 2014Q3

REPORT INFORMATION
  Report Type: Report from Study
  Country: DE (occurrence: DE)
  Receive Date: 20140703
  Receipt Date: 20140703
  Transmission Date: 20150326
  Serious: Yes (Hospitalization, Other)
  Sender: FDA-Public Use
  Company Number: DE-009507513-1107USA01076

PATIENT
  Age: 56 Year
  Sex: Male
  Weight: 102 kg

DRUGS (5)
  1. PANTOZOL [Concomitant]
     Active Substance: PANTOPRAZOLE SODIUM
     Dosage: 40MG DAILY DOSE
     Route: 048
     Dates: start: 20110101
  2. ASPIRIN. [Concomitant]
     Active Substance: ASPIRIN
     Dosage: 100MG DAILY DOSE
     Route: 048
     Dates: start: 20080320
  3. METOPROLOL [Concomitant]
     Active Substance: METOPROLOL
     Dosage: 50MG DAILY DOSE
     Route: 048
     Dates: start: 20080320
  4. ASPIRIN. [Concomitant]
     Active Substance: ASPIRIN
     Dosage: 100MG DAILY DOSE
     Route: 048
     Dates: start: 20110320
  5. EZETIMIBE AND SIMVASTATIN [Suspect]
     Active Substance: EZETIMIBE\SIMVASTATIN
     Indication: ACUTE CORONARY SYNDROME
     Dosage: 10/40 MG, QD
     Route: 048
     Dates: start: 20080320, end: 20110914

REACTIONS (3)
  - Myelodysplastic syndrome [Unknown]
  - Subcutaneous abscess [Recovered/Resolved]
  - Abscess neck [Recovered/Resolved]

NARRATIVE: CASE EVENT DATE: 20110526
